FAERS Safety Report 18514863 (Version 1)
Quarter: 2020Q4

REPORT INFORMATION
  Report Type: Spontaneous
  Country: US (occurrence: US)
  Receive Date: 20201118
  Receipt Date: 20201118
  Transmission Date: 20210114
  Serious: No
  Sender: FDA-Public Use
  Company Number: US-UCBSA-2020018862

PATIENT
  Age: 33 Year
  Sex: Female
  Weight: 56 kg

DRUGS (4)
  1. VIMPAT [Suspect]
     Active Substance: LACOSAMIDE
     Dosage: 50 MILLIGRAM, 3X/DAY (TID)
     Dates: start: 201806, end: 20190225
  2. VIMPAT [Suspect]
     Active Substance: LACOSAMIDE
     Dosage: 50 MILLIGRAM, 4X/DAY (QID)
     Dates: start: 20180315, end: 201806
  3. VIMPAT [Suspect]
     Active Substance: LACOSAMIDE
     Indication: SEIZURE
     Dosage: 100 MILLIGRAM, 2X/DAY (BID)
     Dates: start: 201712, end: 201812
  4. VIMPAT [Suspect]
     Active Substance: LACOSAMIDE
     Dosage: 50 MILLIGRAM
     Dates: start: 20190226

REACTIONS (1)
  - No adverse event [Unknown]

NARRATIVE: CASE EVENT DATE: 201712
